FAERS Safety Report 23358632 (Version 3)
Quarter: 2024Q1

REPORT INFORMATION
  Report Type: Spontaneous
  Country: US (occurrence: US)
  Receive Date: 20240102
  Receipt Date: 20240229
  Transmission Date: 20240410
  Serious: Yes (Hospitalization, Other)
  Sender: FDA-Public Use
  Company Number: US-BRISTOL-MYERS SQUIBB COMPANY-2023-188755

PATIENT
  Age: 67 Year
  Sex: Female
  Weight: 86.18 kg

DRUGS (2)
  1. REVLIMID [Suspect]
     Active Substance: LENALIDOMIDE
     Indication: Plasma cell myeloma
     Dosage: DAILY ON DAYS 1-14 EVERY 28 DAYS
     Route: 048
     Dates: start: 20231220
  2. REVLIMID [Suspect]
     Active Substance: LENALIDOMIDE
     Dosage: 5MG D 1-21 Q 28 DAYS

REACTIONS (5)
  - Kidney infection [Unknown]
  - Sinusitis [Unknown]
  - Off label use [Unknown]
  - Infection [Unknown]
  - Therapeutic product effect increased [Not Recovered/Not Resolved]
